FAERS Safety Report 8332754-6 (Version None)
Quarter: 2012Q2

REPORT INFORMATION
  Report Type: 
  Country: None (occurrence: None)
  Receive Date: 20120503
  Receipt Date: 20120425
  Transmission Date: 20120825
  Serious: Yes (Other)
  Sender: FDA-Public Use
  Company Number: US-US-EMD SERONO, INC.-7090694

PATIENT
  Sex: Female
  Weight: 59 kg

DRUGS (6)
  1. LYRICA [Concomitant]
     Indication: NEURALGIA
  2. FENTANYL-100 [Concomitant]
     Indication: PAIN
  3. OXYCODONE HCL [Concomitant]
     Indication: PAIN
  4. METOPROLOL TARTRATE [Concomitant]
     Indication: HYPERTENSION
  5. REBIF [Suspect]
     Indication: MULTIPLE SCLEROSIS
     Route: 058
     Dates: start: 20110819, end: 20111209
  6. DIAZEPAM [Concomitant]
     Indication: TREMOR

REACTIONS (9)
  - ADVERSE DRUG REACTION [None]
  - INJECTION SITE ERYTHEMA [None]
  - INSOMNIA [None]
  - PAIN IN EXTREMITY [None]
  - NERVE INJURY [None]
  - DEPRESSION [None]
  - INFLUENZA LIKE ILLNESS [None]
  - URINARY TRACT INFECTION [None]
  - INJECTION SITE PAIN [None]
